FAERS Safety Report 10231749 (Version 2)
Quarter: 2014Q2

REPORT INFORMATION
  Report Type: Report from Study
  Country: US (occurrence: US)
  Receive Date: 20140612
  Receipt Date: 20140612
  Transmission Date: 20141212
  Serious: Yes (Other)
  Sender: FDA-Public Use
  Company Number: US-ROCHE-1303371

PATIENT
  Sex: Female
  Weight: 60.84 kg

DRUGS (8)
  1. HERCEPTIN [Suspect]
     Indication: BREAST CANCER METASTATIC
     Route: 042
     Dates: start: 2006, end: 2009
  2. HERCEPTIN [Suspect]
     Dosage: 3 WEEKS ON AND 1 WEEK OFF
     Route: 042
     Dates: start: 2011
  3. XELODA [Suspect]
     Indication: BREAST CANCER METASTATIC
     Dosage: 3 BID EVERY OTHER WAY?7 WEEKS ON; 7 WEEKS OFF
     Route: 048
     Dates: start: 200912, end: 201112
  4. XELODA [Suspect]
     Dosage: 8 PILLS 7 WEEKS ON AND 7 WEEKS OFF
     Route: 065
  5. XELODA [Suspect]
     Dosage: 6 PILLS
     Route: 065
  6. NAVELBINE [Concomitant]
     Indication: BREAST CANCER METASTATIC
     Dosage: EVERY WEEK X3 NONE X1 WEEK
     Route: 065
     Dates: start: 201112
  7. XGEVA [Concomitant]
     Indication: BREAST CANCER METASTATIC
     Route: 042
     Dates: start: 201208
  8. XGEVA [Concomitant]
     Indication: BONE CANCER

REACTIONS (21)
  - Disease progression [Unknown]
  - Hepatic lesion [Unknown]
  - Tumour marker increased [Unknown]
  - Skin discolouration [Recovering/Resolving]
  - Skin discolouration [Recovering/Resolving]
  - Burning sensation [Recovered/Resolved]
  - Burning sensation [Recovered/Resolved]
  - Malaise [Recovered/Resolved]
  - Metastases to liver [Not Recovered/Not Resolved]
  - Weight increased [Not Recovered/Not Resolved]
  - Fatigue [Recovering/Resolving]
  - Personality change [Recovered/Resolved]
  - Drug effect decreased [Unknown]
  - Gait disturbance [Unknown]
  - Dyspnoea [Unknown]
  - Visual acuity reduced [Unknown]
  - Cataract [Unknown]
  - Metastases to lymph nodes [Not Recovered/Not Resolved]
  - Breast cancer recurrent [Not Recovered/Not Resolved]
  - Metastases to bone [Unknown]
  - Pain in extremity [Not Recovered/Not Resolved]
